FAERS Safety Report 18143935 (Version 1)
Quarter: 2020Q3

REPORT INFORMATION
  Report Type: Spontaneous
  Country: US (occurrence: US)
  Receive Date: 20200811
  Receipt Date: 20200811
  Transmission Date: 20201103
  Serious: No
  Sender: FDA-Public Use
  Company Number: None

PATIENT
  Age: 60 Year
  Sex: Female

DRUGS (13)
  1. ACTIVELLA [Concomitant]
     Active Substance: ESTRADIOL\NORETHINDRONE ACETATE
  2. NITROFURANTIN [Concomitant]
     Active Substance: NITROFURANTOIN
  3. LOSARTAN POT [Concomitant]
     Active Substance: LOSARTAN POTASSIUM
  4. MELOXICAM. [Concomitant]
     Active Substance: MELOXICAM
  5. ASPIRIN. [Concomitant]
     Active Substance: ASPIRIN
  6. LEVOTHYROXIN [Concomitant]
     Active Substance: LEVOTHYROXINE
  7. HUMIRA [Suspect]
     Active Substance: ADALIMUMAB
     Indication: RHEUMATOID ARTHRITIS
     Dosage: ?          OTHER DOSE:1 PEN;OTHER FREQUENCY:EVERY 7 DAY;?
     Route: 058
     Dates: start: 20160331
  8. PROGESTERONE. [Concomitant]
     Active Substance: PROGESTERONE
  9. TIZANIDINE. [Concomitant]
     Active Substance: TIZANIDINE
  10. ALEVE [Concomitant]
     Active Substance: NAPROXEN SODIUM
  11. DICLOFENAC [Concomitant]
     Active Substance: DICLOFENAC
  12. ESTRA/NORETH [Concomitant]
  13. PAROXETINE. [Concomitant]
     Active Substance: PAROXETINE

REACTIONS (2)
  - COVID-19 [None]
  - Therapy interrupted [None]

NARRATIVE: CASE EVENT DATE: 202007
